FAERS Safety Report 14213950 (Version 5)
Quarter: 2018Q1

REPORT INFORMATION
  Report Type: Spontaneous
  Country: SK (occurrence: SK)
  Receive Date: 20171122
  Receipt Date: 20180305
  Transmission Date: 20180508
  Serious: Yes (Hospitalization, Other)
  Sender: FDA-Public Use
  Company Number: SK-ELI_LILLY_AND_COMPANY-SK201711005097

PATIENT
  Age: 66 Year
  Sex: Male

DRUGS (4)
  1. TRULICITY [Suspect]
     Active Substance: DULAGLUTIDE
     Indication: DIABETES MELLITUS
     Dosage: 1.5 MG, WEEKLY (1/W)
     Route: 058
     Dates: start: 20171012, end: 20171116
  2. METFOGAMMA [Concomitant]
     Active Substance: METFORMIN HYDROCHLORIDE
     Dosage: 1000 MG, DAILY
     Route: 065
  3. METFOGAMMA [Concomitant]
     Active Substance: METFORMIN HYDROCHLORIDE
     Indication: DIABETES MELLITUS
     Dosage: 1000 MG, EACH MORNING
     Route: 065
  4. AMARYL [Concomitant]
     Active Substance: GLIMEPIRIDE
     Indication: DIABETES MELLITUS
     Dosage: 4 MG, DAILY
     Route: 065

REACTIONS (7)
  - Atrial fibrillation [Unknown]
  - Aortic stenosis [Unknown]
  - Degenerative tricuspid valve disease [Unknown]
  - Myocardial ischaemia [Unknown]
  - Hyperglycaemia [Unknown]
  - Cardiac failure chronic [Unknown]
  - Mitral valve stenosis [Unknown]

NARRATIVE: CASE EVENT DATE: 20171109
